FAERS Safety Report 4865934-2 (Version None)
Quarter: 2005Q4

REPORT INFORMATION
  Report Type: 
  Country: None (occurrence: None)
  Receive Date: 20051226
  Receipt Date: 20051124
  Transmission Date: 20060501
  Serious: Yes (Other)
  Sender: FDA-Public Use
  Company Number: PHNU2005DE03898

PATIENT
  Age: 60 Year
  Sex: Female

DRUGS (2)
  1. FORADIL [Suspect]
     Indication: ASTHMA
     Dosage: 1 DF, BID
     Dates: start: 20051102, end: 20051102
  2. FORADIL [Suspect]

REACTIONS (3)
  - BLOOD PRESSURE FLUCTUATION [None]
  - HYPERTENSION [None]
  - PHARMACEUTICAL PRODUCT COMPLAINT [None]
